FAERS Safety Report 18390044 (Version 2)
Quarter: 2021Q1

REPORT INFORMATION
  Report Type: Report from Study
  Country: US (occurrence: US)
  Receive Date: 20201015
  Receipt Date: 20210202
  Transmission Date: 20210419
  Serious: Yes (Other)
  Sender: FDA-Public Use
  Company Number: US-CORCEPT THERAPEUTICS INC.-US-2020CRT001186

PATIENT
  Sex: Male

DRUGS (1)
  1. KORLYM [Suspect]
     Active Substance: MIFEPRISTONE
     Indication: HYPERGLYCAEMIA
     Dosage: 600 MG
     Route: 048

REACTIONS (2)
  - Malignant melanoma [Unknown]
  - Weight increased [Unknown]
